FAERS Safety Report 9503844 (Version 2)
Quarter: 2013Q3

REPORT INFORMATION
  Report Type: Report from Study
  Country: US (occurrence: US)
  Receive Date: 20130906
  Receipt Date: 20130918
  Transmission Date: 20140515
  Serious: Yes (Hospitalization)
  Sender: FDA-Public Use
  Company Number: US-JNJFOC-20130902632

PATIENT
  Age: 68 Year
  Sex: Female
  Weight: 64 kg

DRUGS (13)
  1. TREANDA [Suspect]
     Indication: PLASMA CELL MYELOMA
     Route: 042
     Dates: start: 20130617
  2. DOXIL [Suspect]
     Indication: PLASMA CELL MYELOMA
     Route: 042
     Dates: start: 20130620
  3. BORTEZOMIB [Suspect]
     Indication: PLASMA CELL MYELOMA
     Route: 042
     Dates: start: 20130617, end: 20130826
  4. GABAPENTIN [Concomitant]
     Route: 048
  5. FERREX [Concomitant]
     Route: 065
  6. LISINOPRIL [Concomitant]
     Route: 065
  7. MULTIVITAMINS [Concomitant]
     Route: 065
  8. ZOFRAN [Concomitant]
     Route: 048
  9. PANTOPRAZOLE [Concomitant]
     Route: 048
  10. COMPAZINE [Concomitant]
     Route: 048
  11. SENOKOT [Concomitant]
     Route: 048
  12. ACYCLOVIR [Concomitant]
     Route: 065
  13. ALLOPURINOL [Concomitant]
     Route: 048

REACTIONS (1)
  - Pneumonia [Not Recovered/Not Resolved]
